FAERS Safety Report 12696964 (Version 1)
Quarter: 2016Q3

REPORT INFORMATION
  Report Type: Spontaneous
  Country: US (occurrence: None)
  Receive Date: 20160829
  Receipt Date: 20160829
  Transmission Date: 20161109
  Serious: Yes (Disabling, Other)
  Sender: FDA-Public Use
  Company Number: None

PATIENT
  Age: 57 Year
  Sex: Female
  Weight: 54.43 kg

DRUGS (14)
  1. CIPROFLOXACIN, 500 MG COBALT } ACTAVIS } ALLERGAN [Suspect]
     Active Substance: CIPROFLOXACIN
     Indication: GASTROENTERITIS VIRAL
     Route: 048
     Dates: start: 20110117, end: 20111028
  2. CLONAZAPAM [Concomitant]
     Active Substance: CLONAZEPAM
  3. RED MARINE ALGAE PLUS CATS CLAW LICORICE D3 L-LYSINE [Concomitant]
  4. LEMON BALM MAGNESIUM L-THREONINE [Concomitant]
  5. ASEA WATER [Concomitant]
  6. MAGNESIUM CITRATE. [Concomitant]
     Active Substance: MAGNESIUM CITRATE
  7. TYLENOL [Concomitant]
     Active Substance: ACETAMINOPHEN
  8. NETTLE LEAVES [Concomitant]
  9. SUPER B COMPLEX [Concomitant]
     Active Substance: CYANOCOBALAMIN\DEXPANTHENOL\NIACINAMIDE\PYRIDOXINE HYDROCHLORIDE\RIBOFLAVIN 5^-PHOSPHATE SODIUM\THIAMINE HYDROCHLORIDE\VITAMIN B COMPLEX
  10. TURMERIC CUR CUMIN [Concomitant]
  11. ZINC PICOLINATE [Concomitant]
     Active Substance: ZINC PICOLINATE
  12. BLACK ELDERBERRY SYRUP [Concomitant]
  13. SOVEREIGN SILVER [Concomitant]
  14. CAFFEINE PILLS [Concomitant]

REACTIONS (14)
  - Dysarthria [None]
  - Muscle disorder [None]
  - Fatigue [None]
  - Dizziness [None]
  - Pain [None]
  - Constipation [None]
  - Fall [None]
  - Mental impairment [None]
  - Gingival bleeding [None]
  - Anxiety [None]
  - Migraine [None]
  - Vision blurred [None]
  - Herpes zoster [None]
  - Weight decreased [None]

NARRATIVE: CASE EVENT DATE: 20111101
